FAERS Safety Report 10100643 (Version 1)
Quarter: 2014Q2

REPORT INFORMATION
  Report Type: Spontaneous
  Country: None (occurrence: US)
  Receive Date: 20140423
  Receipt Date: 20140423
  Transmission Date: 20141212
  Serious: No
  Sender: FDA-Public Use
  Company Number: US-TEVA-475049USA

PATIENT
  Age: 35 Year
  Sex: Male
  Weight: 81.72 kg

DRUGS (4)
  1. PROAIR HFA [Suspect]
     Indication: BRONCHITIS
     Dosage: 1 PUFF
     Route: 055
     Dates: start: 20140326
  2. NORVASC [Concomitant]
     Indication: HYPERTENSION
  3. PREVACID [Concomitant]
     Indication: DYSPEPSIA
  4. ZOLOFT [Concomitant]
     Indication: ANXIETY

REACTIONS (2)
  - Palpitations [Not Recovered/Not Resolved]
  - Anxiety [Not Recovered/Not Resolved]
